FAERS Safety Report 5442841-8 (Version None)
Quarter: 2007Q3

REPORT INFORMATION
  Report Type: 
  Country: None (occurrence: None)
  Receive Date: 20070830
  Receipt Date: 20070816
  Transmission Date: 20080115
  Serious: Yes (Hospitalization)
  Sender: FDA-Public Use
  Company Number: 236881K07USA

PATIENT
  Age: 56 Year
  Sex: Female

DRUGS (11)
  1. REBIF [Suspect]
     Indication: MULTIPLE SCLEROSIS
     Dosage: 8.8  MCG, 3 IN 1 WEEKS, SUBCUTANEOUS
     Route: 058
     Dates: start: 20070618, end: 20070626
  2. DOXORUBICIN (DOXORUBICIN /00330901/) [Suspect]
     Dosage: 8 CYCLES
  3. ARICEPT [Concomitant]
  4. CYCLOBENZAPRINE [Concomitant]
  5. VICODIN [Concomitant]
  6. GABAPENTIN [Concomitant]
  7. ZANAFLEX [Concomitant]
  8. DURADRIN (ISOCOM) [Concomitant]
  9. CARBAMAZEPINE [Concomitant]
  10. DIAZEPAM [Concomitant]
  11. LASIX [Concomitant]

REACTIONS (6)
  - CANDIDIASIS [None]
  - CARDIAC FAILURE CONGESTIVE [None]
  - CHRONIC OBSTRUCTIVE PULMONARY DISEASE [None]
  - INFLUENZA LIKE ILLNESS [None]
  - PNEUMONIA [None]
  - RENAL FAILURE [None]
